FAERS Safety Report 21500880 (Version 1)
Quarter: 2022Q4

REPORT INFORMATION
  Report Type: Other
  Country: DE (occurrence: None)
  Receive Date: 20221025
  Receipt Date: 20221025
  Transmission Date: 20230113
  Serious: Yes (Other)
  Sender: FDA-Public Use
  Company Number: DE-ROCHE-3201663

PATIENT
  Age: 35 Year
  Sex: Male

DRUGS (1)
  1. HEMLIBRA [Suspect]
     Active Substance: EMICIZUMAB-KXWH
     Indication: Factor VIII deficiency
     Route: 058
     Dates: start: 2018

REACTIONS (3)
  - Gastric haemorrhage [Recovered/Resolved]
  - Gastrointestinal injury [Recovered/Resolved]
  - Abdominal pain upper [Recovered/Resolved]
